FAERS Safety Report 12799516 (Version 1)
Quarter: 2016Q3

REPORT INFORMATION
  Report Type: Spontaneous
  Country: US (occurrence: US)
  Receive Date: 20160930
  Receipt Date: 20160930
  Transmission Date: 20161109
  Serious: No
  Sender: FDA-Public Use
  Company Number: US-PARI RESPIRATORY EQUIPMENT, INC.-2016PAR00026

PATIENT
  Age: 11 Year
  Sex: Female
  Weight: 28.4 kg

DRUGS (10)
  1. PULMOZYME [Concomitant]
     Active Substance: DORNASE ALFA
  2. CREON [Concomitant]
     Active Substance: PANCRELIPASE AMYLASE\PANCRELIPASE LIPASE\PANCRELIPASE PROTEASE
  3. PEDIASURE [Concomitant]
     Active Substance: VITAMINS
  4. KITABIS PAK [Suspect]
     Active Substance: TOBRAMYCIN
     Indication: INFECTION
  5. CIPROFLOXACIN. [Suspect]
     Active Substance: CIPROFLOXACIN
     Indication: INFECTION
     Dosage: 1 TABLETS, 2X/DAY
     Dates: start: 20160820
  6. PROAIR HFA [Concomitant]
     Active Substance: ALBUTEROL SULFATE
  7. RANITIDINE. [Concomitant]
     Active Substance: RANITIDINE
  8. MIRA LAX [Concomitant]
  9. KITABIS PAK [Suspect]
     Active Substance: TOBRAMYCIN
     Indication: CYSTIC FIBROSIS
     Dosage: 300 MG, 2X/DAY
     Dates: start: 20160820, end: 20160829
  10. LEVOTHYROXINE. [Concomitant]
     Active Substance: LEVOTHYROXINE

REACTIONS (1)
  - Rash pruritic [Not Recovered/Not Resolved]

NARRATIVE: CASE EVENT DATE: 20160828
